FAERS Safety Report 21677454 (Version 1)
Quarter: 2022Q4

REPORT INFORMATION
  Report Type: Spontaneous
  Country: PL (occurrence: PL)
  Receive Date: 20221203
  Receipt Date: 20221203
  Transmission Date: 20230112
  Serious: Yes (Life-Threatening, Hospitalization)
  Sender: FDA-Public Use
  Company Number: None

PATIENT
  Age: 62 Year
  Sex: Female
  Weight: 75 kg

DRUGS (3)
  1. TEGRETOL [Suspect]
     Active Substance: CARBAMAZEPINE
     Indication: Trigeminal neuralgia
     Dosage: 400 MG
     Route: 048
     Dates: start: 201808, end: 20181126
  2. VINPOCETINE [Suspect]
     Active Substance: VINPOCETINE
     Indication: Trigeminal neuralgia
     Dosage: 15 MG
     Route: 048
     Dates: start: 201810, end: 20181126
  3. TRAMADOL HYDROCHLORIDE [Suspect]
     Active Substance: TRAMADOL HYDROCHLORIDE
     Indication: Trigeminal neuralgia
     Dosage: 300 MG
     Route: 048
     Dates: start: 201808, end: 20181126

REACTIONS (1)
  - Seizure [Recovering/Resolving]

NARRATIVE: CASE EVENT DATE: 20181126
